FAERS Safety Report 8483219-2 (Version None)
Quarter: 2012Q3

REPORT INFORMATION
  Report Type: 
  Country: None (occurrence: None)
  Receive Date: 20120702
  Receipt Date: 20120625
  Transmission Date: 20120928
  Serious: Yes (Other)
  Sender: FDA-Public Use
  Company Number: US-B.I. PHARMACEUTICALS,INC./RIDGEFIELD-2012-EU-03298GD

PATIENT

DRUGS (3)
  1. PRAMIPEXOLE DIHYCHLORIDE [Suspect]
  2. LEVODOPA [Suspect]
  3. SELEGILINE [Suspect]
     Dosage: 10 MG
     Route: 062

REACTIONS (3)
  - DOPAMINE DYSREGULATION SYNDROME [None]
  - DRUG INTERACTION [None]
  - GAMBLING [None]
